FAERS Safety Report 9267310 (Version 4)
Quarter: 2013Q4

REPORT INFORMATION
  Report Type: Report from Study
  Country: FR (occurrence: FR)
  Receive Date: 20130502
  Receipt Date: 20131021
  Transmission Date: 20140711
  Serious: Yes (Hospitalization)
  Sender: FDA-Public Use
  Company Number: FR-PFIZER INC-2013130798

PATIENT
  Age: 77 Year
  Sex: 0
  Weight: 67 kg

DRUGS (4)
  1. TORISEL [Suspect]
     Indication: MANTLE CELL LYMPHOMA
     Dosage: 175 MG, WEEKLY
     Dates: start: 20100517, end: 20100602
  2. TORISEL [Suspect]
     Dosage: 75 MG, WEEKLY
     Dates: start: 20100609, end: 20100825
  3. TORISEL [Suspect]
     Dosage: 75 MG, WEEKLY
     Dates: start: 20100922, end: 20110211
  4. TORISEL [Suspect]
     Dosage: 75 MG, WEEKLY
     Dates: start: 20110311, end: 20110429

REACTIONS (14)
  - Cardiac failure [Unknown]
  - Pulmonary sepsis [Unknown]
  - Pneumocystis jirovecii pneumonia [Unknown]
  - Cholelithiasis [Unknown]
  - Cholecystitis acute [Unknown]
  - Oedema peripheral [Unknown]
  - Decreased appetite [Unknown]
  - Asthenia [Unknown]
  - Epistaxis [Unknown]
  - Diarrhoea [Recovered/Resolved]
  - Venous insufficiency [Unknown]
  - Cardiac murmur [Unknown]
  - Axonal neuropathy [Unknown]
  - Hypothyroidism [Unknown]
